FAERS Safety Report 7179333-4 (Version None)
Quarter: 2010Q4

REPORT INFORMATION
  Report Type: 
  Country: None (occurrence: None)
  Receive Date: 20101221
  Receipt Date: 20101214
  Transmission Date: 20110411
  Serious: Yes (Other)
  Sender: FDA-Public Use
  Company Number: US-SANOFI-AVENTIS-2010SA076319

PATIENT
  Age: 66 Year
  Sex: Male

DRUGS (6)
  1. MULTAQ [Suspect]
     Indication: ATRIAL FIBRILLATION
     Route: 048
     Dates: start: 20100101, end: 20101101
  2. AMIODARONE HCL [Concomitant]
  3. METOPROLOL [Concomitant]
  4. AMLODIPINE [Concomitant]
  5. DABIGATRAN [Concomitant]
  6. HYDROCHLOROTHIAZIDE/LOSARTAN POTASSIUM [Concomitant]

REACTIONS (3)
  - BLOOD THYROID STIMULATING HORMONE DECREASED [None]
  - HYPERTHYROIDISM [None]
  - WEIGHT DECREASED [None]
